FAERS Safety Report 6202416-X (Version None)
Quarter: 2009Q2

REPORT INFORMATION
  Report Type: 
  Country: None (occurrence: None)
  Receive Date: 20090521
  Receipt Date: 20090521
  Transmission Date: 20091009
  Serious: No
  Sender: FDA-Public Use
  Company Number: None

PATIENT
  Age: 41 Year
  Sex: Female
  Weight: 47.6277 kg

DRUGS (2)
  1. CEFDINIR [Suspect]
     Indication: PHARYNGITIS
     Dosage: 2 PILLS ONE TIME PER DAY
     Dates: start: 20090415
  2. CEFDINIR [Suspect]
     Indication: PHARYNGITIS
     Dosage: 2 PILLS ONE TIME PER DAY
     Dates: start: 20090417

REACTIONS (8)
  - DYSGEUSIA [None]
  - FEELING ABNORMAL [None]
  - HYPERSENSITIVITY [None]
  - NASOPHARYNGITIS [None]
  - OVERDOSE [None]
  - PANIC REACTION [None]
  - POISONING [None]
  - SWELLING [None]
